FAERS Safety Report 25945183 (Version 1)
Quarter: 2025Q4

REPORT INFORMATION
  Report Type: Spontaneous
  Country: US (occurrence: US)
  Receive Date: 20251021
  Receipt Date: 20251021
  Transmission Date: 20260118
  Serious: No
  Sender: ROCHE
  Company Number: US-ROCHE-10000405788

PATIENT

DRUGS (1)
  1. ACTEMRA [Suspect]
     Active Substance: TOCILIZUMAB
     Indication: Product used for unknown indication
     Dosage: 62MG/0.9ML
     Route: 065

REACTIONS (2)
  - Drug delivery system malfunction [Unknown]
  - Contusion [Unknown]

NARRATIVE: CASE EVENT DATE: 20251001
